FAERS Safety Report 15079496 (Version 1)
Quarter: 2018Q2

REPORT INFORMATION
  Report Type: Spontaneous
  Country: US (occurrence: US)
  Receive Date: 20180607
  Receipt Date: 20180607
  Transmission Date: 20180711
  Serious: Yes (Disabling)
  Sender: FDA-Public Use
  Company Number: None

PATIENT
  Age: 82 Year
  Sex: Female
  Weight: 68.49 kg

DRUGS (15)
  1. YEAST CLEANSE [Concomitant]
     Active Substance: YEAST
  2. TRIAMCINOLONE ACETONIDE CREAM [Concomitant]
     Active Substance: TRIAMCINOLONE ACETONIDE
  3. ROYAL CAMU [Concomitant]
  4. ULTRA KRILL [Concomitant]
  5. CALCIPOTRIENE CREAM [Concomitant]
  6. VITAPULSE [Concomitant]
  7. LEVOTHYROXINE. [Concomitant]
     Active Substance: LEVOTHYROXINE
  8. FULVIC MINERALS [Concomitant]
  9. VISIVITE [Concomitant]
  10. CRANBERRY. [Concomitant]
     Active Substance: CRANBERRY
  11. VIT B!2 [Concomitant]
  12. VITAMIN D3 [Concomitant]
     Active Substance: CHOLECALCIFEROL
  13. METHYLFOLATE [Concomitant]
     Active Substance: LEVOMEFOLATE CALCIUM
  14. VINEGAR/SEA SALT/H2 FOOT SOAKS [Concomitant]
  15. NATURE-THROID [Suspect]
     Active Substance: THYROID, PORCINE
     Indication: HYPOTHYROIDISM
     Dosage: 1. DAILY BEFORE BREAKFAST, 45 MINS BEFORE ANY CALCIUM, BY MOUTH?
     Route: 048
     Dates: start: 20180424, end: 20180526

REACTIONS (4)
  - Product use in unapproved indication [None]
  - Pain [None]
  - Rash pustular [None]
  - Burning sensation [None]

NARRATIVE: CASE EVENT DATE: 20180430
